FAERS Safety Report 13460167 (Version 1)
Quarter: 2017Q2

REPORT INFORMATION
  Report Type: Spontaneous
  Country: ES (occurrence: ES)
  Receive Date: 20170420
  Receipt Date: 20170420
  Transmission Date: 20170830
  Serious: Yes (Hospitalization, Other)
  Sender: FDA-Public Use
  Company Number: ES-UCBSA-2017014759

PATIENT
  Age: 28 Year
  Sex: Male

DRUGS (3)
  1. METHYLPHENIDATE HYDROCHLORIDE. [Suspect]
     Active Substance: METHYLPHENIDATE HYDROCHLORIDE
     Indication: ATTENTION DEFICIT/HYPERACTIVITY DISORDER
     Dosage: 600 MG, ONCE DAILY (QD)
  2. CLONAZEPAM. [Concomitant]
     Active Substance: CLONAZEPAM
     Indication: ANXIETY
     Dosage: UNK
  3. RISPERIDONE. [Concomitant]
     Active Substance: RISPERIDONE
     Indication: PRODUCT USED FOR UNKNOWN INDICATION
     Dosage: RISPERIDONE DEPOT 50 MG/15 DAYS

REACTIONS (3)
  - Oromandibular dystonia [Recovered/Resolved]
  - Withdrawal syndrome [Recovered/Resolved]
  - Intentional overdose [Unknown]
